FAERS Safety Report 23674191 (Version 1)
Quarter: 2024Q1

REPORT INFORMATION
  Report Type: Spontaneous
  Country: US (occurrence: None)
  Receive Date: 20240326
  Receipt Date: 20240326
  Transmission Date: 20240410
  Serious: Yes (Hospitalization)
  Sender: FDA-Public Use
  Company Number: None

PATIENT
  Age: 37 Week
  Sex: Male
  Weight: 115 kg

DRUGS (7)
  1. ORENCIA [Suspect]
     Active Substance: ABATACEPT
     Indication: Psoriasis
     Dosage: FREQUENCY : WEEKLY;?
     Route: 058
     Dates: start: 20240220
  2. ORENCIA [Suspect]
     Active Substance: ABATACEPT
     Indication: Polyarthritis
  3. TACROLIMUS [Concomitant]
     Active Substance: TACROLIMUS
  4. MYCOPHENOLIC ACID [Concomitant]
     Active Substance: MYCOPHENOLIC ACID
  5. PREDNISONE [Concomitant]
     Active Substance: PREDNISONE
  6. Valganciolovir [Concomitant]
  7. SULFAMETHOXAZOLE\TRIMETHOPRIM [Concomitant]
     Active Substance: SULFAMETHOXAZOLE\TRIMETHOPRIM

REACTIONS (6)
  - Chills [None]
  - Nausea [None]
  - Blood creatine increased [None]
  - Tubulointerstitial nephritis [None]
  - Vasculitis [None]
  - Kidney transplant rejection [None]

NARRATIVE: CASE EVENT DATE: 20240319
